FAERS Safety Report 4626184-8 (Version None)
Quarter: 2005Q2

REPORT INFORMATION
  Report Type: 
  Country: None (occurrence: None)
  Receive Date: 20050404
  Receipt Date: 20041109
  Transmission Date: 20051028
  Serious: Yes (Life-Threatening, Hospitalization)
  Sender: FDA-Public Use
  Company Number: BR-2004-BP-11494BR

PATIENT
  Sex: Male
  Weight: 76 kg

DRUGS (3)
  1. TIOTROPIUM INHALATION POWDER (BLIND) [Suspect]
     Indication: CHRONIC OBSTRUCTIVE PULMONARY DISEASE
     Route: 055
     Dates: start: 20030613, end: 20041105
  2. PLACEBO (BLIND) [Suspect]
     Route: 055
     Dates: start: 20030613, end: 20041105
  3. PROPRANOLOL [Suspect]
     Indication: MIGRAINE
     Dates: start: 20041105, end: 20041105

REACTIONS (2)
  - CARDIOPULMONARY FAILURE [None]
  - CHRONIC OBSTRUCTIVE AIRWAYS DISEASE EXACERBATED [None]
